FAERS Safety Report 9177353 (Version 3)
Quarter: 2014Q4

REPORT INFORMATION
  Report Type: Spontaneous
  Country: CA (occurrence: CA)
  Receive Date: 20130321
  Receipt Date: 20141111
  Transmission Date: 20150529
  Serious: Yes (Other)
  Sender: FDA-Public Use
  Company Number: CA-JNJFOC-20130215221

PATIENT
  Age: 63 Year
  Sex: Female
  Weight: 78.93 kg

DRUGS (2)
  1. NICORETTE CINNAMON SURGE [Suspect]
     Active Substance: NICOTINE
     Indication: SMOKING CESSATION THERAPY
     Dosage: 1 PIECE AT A TIME, 10-15 TIMES THROUGHOUT THE DAY. THE PATIENT USED DRUG FOR 2 YEARS.
     Route: 048
     Dates: start: 20090901
  2. PAXIL [Concomitant]
     Active Substance: PAROXETINE HYDROCHLORIDE
     Indication: DEPRESSION
     Dosage: SINCE 2 YEARS
     Route: 065
     Dates: start: 2010

REACTIONS (2)
  - Intentional product use issue [Unknown]
  - Nicotine dependence [Recovering/Resolving]

NARRATIVE: CASE EVENT DATE: 20100901
